FAERS Safety Report 11313692 (Version 1)
Quarter: 2015Q3

REPORT INFORMATION
  Report Type: Spontaneous
  Country: US (occurrence: None)
  Receive Date: 20150724
  Receipt Date: 20150724
  Transmission Date: 20151125
  Serious: Yes (Hospitalization)
  Sender: FDA-Public Use
  Company Number: None

PATIENT
  Age: 85 Year
  Sex: Male
  Weight: 68.8 kg

DRUGS (1)
  1. RIVAROXABAN [Suspect]
     Active Substance: RIVAROXABAN
     Indication: DEEP VEIN THROMBOSIS
     Route: 048
     Dates: start: 20150716, end: 20150723

REACTIONS (7)
  - Haemoglobin decreased [None]
  - Upper gastrointestinal haemorrhage [None]
  - Therapy cessation [None]
  - Haematochezia [None]
  - Melaena [None]
  - Lower gastrointestinal haemorrhage [None]
  - Condition aggravated [None]

NARRATIVE: CASE EVENT DATE: 20150721
